FAERS Safety Report 18652152 (Version 1)
Quarter: 2020Q4

REPORT INFORMATION
  Report Type: Spontaneous
  Country: US (occurrence: US)
  Receive Date: 20201222
  Receipt Date: 20201222
  Transmission Date: 20210114
  Serious: No
  Sender: FDA-Public Use
  Company Number: US-BAUSCH-BL-2020-035775

PATIENT
  Age: 54 Year
  Sex: Female

DRUGS (1)
  1. XENAZINE [Suspect]
     Active Substance: TETRABENAZINE
     Indication: HUNTINGTON^S DISEASE
     Route: 048
     Dates: end: 202011

REACTIONS (9)
  - Fall [Unknown]
  - Speech disorder [Unknown]
  - Balance disorder [Unknown]
  - Insurance issue [Unknown]
  - Therapy interrupted [Unknown]
  - Movement disorder [Unknown]
  - Inability to afford medication [Unknown]
  - Coordination abnormal [Unknown]
  - Dysarthria [Unknown]

NARRATIVE: CASE EVENT DATE: 2020
